FAERS Safety Report 23100522 (Version 1)
Quarter: 2023Q4

REPORT INFORMATION
  Report Type: Spontaneous
  Country: US (occurrence: None)
  Receive Date: 20231020
  Receipt Date: 20231020
  Transmission Date: 20240110
  Serious: No
  Sender: FDA-Public Use
  Company Number: None

PATIENT
  Age: 50 Year
  Sex: Female
  Weight: 71.21 kg

DRUGS (1)
  1. RASUVO [Suspect]
     Active Substance: METHOTREXATE SODIUM
     Indication: Rheumatoid arthritis
     Dosage: OTHER QUANTITY : 15MG (0.3ML);?FREQUENCY : AS DIRECTED;?
     Route: 058
     Dates: start: 202108

REACTIONS (3)
  - Blood pressure decreased [None]
  - Loss of consciousness [None]
  - Post procedural complication [None]
